FAERS Safety Report 7397259-8 (Version None)
Quarter: 2011Q2

REPORT INFORMATION
  Report Type: 
  Country: None (occurrence: None)
  Receive Date: 20110406
  Receipt Date: 20110331
  Transmission Date: 20111010
  Serious: Yes (Hospitalization, Other)
  Sender: FDA-Public Use
  Company Number: US-ABBOTT-11P-163-0710463-00

PATIENT
  Sex: Male
  Weight: 128.94 kg

DRUGS (3)
  1. TRILIPIX [Concomitant]
     Indication: PRODUCT USED FOR UNKNOWN INDICATION
  2. NIASPAN [Suspect]
     Indication: BLOOD CHOLESTEROL
     Dates: start: 20030301
  3. ASPIRIN [Concomitant]
     Indication: PRODUCT USED FOR UNKNOWN INDICATION

REACTIONS (5)
  - CARDIAC ARREST [None]
  - FLUSHING [None]
  - CORONARY ARTERY OCCLUSION [None]
  - SKIN BURNING SENSATION [None]
  - MYOCARDIAL INFARCTION [None]
